FAERS Safety Report 22590658 (Version 1)
Quarter: 2023Q2

REPORT INFORMATION
  Report Type: Spontaneous
  Country: US (occurrence: None)
  Receive Date: 20230609
  Receipt Date: 20230609
  Transmission Date: 20230722
  Serious: Yes (Death)
  Sender: FDA-Public Use
  Company Number: None

PATIENT
  Age: 77 Year
  Sex: Female

DRUGS (8)
  1. PROCRIT [Suspect]
     Active Substance: ERYTHROPOIETIN
     Indication: Breast cancer female
     Dosage: OTHER STRENGTH : 40,000 UNITS;?OTHER QUANTITY : 40,000UNITS/ML;?FREQUENCY : WEEKLY;?
     Route: 058
  2. CIPROFLOXACIN [Concomitant]
     Active Substance: CIPROFLOXACIN
  3. PALONOSETRON [Concomitant]
     Active Substance: PALONOSETRON
  4. DEXAMETHASONE [Concomitant]
     Active Substance: DEXAMETHASONE
  5. CARBOPLATIN [Concomitant]
     Active Substance: CARBOPLATIN
  6. DOCETAXEL [Concomitant]
     Active Substance: DOCETAXEL
  7. PERJETA [Concomitant]
     Active Substance: PERTUZUMAB
  8. HERCEPTIN [Concomitant]
     Active Substance: TRASTUZUMAB

REACTIONS (1)
  - Death [None]

NARRATIVE: CASE EVENT DATE: 20230601
